FAERS Safety Report 11025125 (Version 1)
Quarter: 2015Q2

REPORT INFORMATION
  Report Type: Spontaneous
  Country: CN (occurrence: CN)
  Receive Date: 20150414
  Receipt Date: 20150414
  Transmission Date: 20150821
  Serious: Yes (Disabling)
  Sender: FDA-Public Use
  Company Number: CN-ROCHE-1563318

PATIENT
  Age: 52 Year
  Sex: Male
  Weight: 56 kg

DRUGS (13)
  1. CAPTOPRIL. [Suspect]
     Active Substance: CAPTOPRIL
     Indication: HYPERTENSION
     Route: 045
     Dates: start: 20140928, end: 20140929
  2. CAPTOPRIL. [Suspect]
     Active Substance: CAPTOPRIL
     Route: 048
     Dates: start: 20141010, end: 20141010
  3. LANSOPRAZOLE. [Suspect]
     Active Substance: LANSOPRAZOLE
     Indication: STRESS
     Route: 041
     Dates: start: 20140928, end: 20141002
  4. LANSOPRAZOLE. [Suspect]
     Active Substance: LANSOPRAZOLE
     Indication: PROPHYLAXIS AGAINST GASTROINTESTINAL ULCER
  5. CAPTOPRIL. [Suspect]
     Active Substance: CAPTOPRIL
     Route: 045
     Dates: start: 20140930, end: 20141010
  6. SODIUM CHLORIDE. [Concomitant]
     Active Substance: SODIUM CHLORIDE
     Route: 041
     Dates: start: 20140928, end: 20141001
  7. NITRENDIPINE [Concomitant]
     Active Substance: NITRENDIPINE
     Indication: HYPERTENSION
     Route: 045
     Dates: start: 20140928, end: 20140929
  8. ROCEPHIN [Suspect]
     Active Substance: CEFTRIAXONE SODIUM
     Indication: INFECTION
     Route: 041
     Dates: start: 20140930, end: 20141009
  9. FUROSEMIDE. [Concomitant]
     Active Substance: FUROSEMIDE
     Indication: CARDIAC FAILURE
     Route: 065
  10. CEFATHIAMIDINE [Suspect]
     Active Substance: CEFTRIAXONE SODIUM
     Indication: INFECTION
     Route: 041
     Dates: start: 20140928, end: 20140929
  11. AMINOCAPROIC ACID. [Suspect]
     Active Substance: AMINOCAPROIC ACID
     Indication: HAEMORRHAGE
     Route: 041
     Dates: start: 20140928, end: 20141001
  12. NITRENDIPINE [Concomitant]
     Active Substance: NITRENDIPINE
     Route: 045
     Dates: start: 20140930, end: 20141012
  13. GLUCOSE [Concomitant]
     Active Substance: DEXTROSE
     Route: 041
     Dates: start: 20140928, end: 20141001

REACTIONS (1)
  - Renal failure [Not Recovered/Not Resolved]

NARRATIVE: CASE EVENT DATE: 20140930
